FAERS Safety Report 8265116-0 (Version None)
Quarter: 2012Q2

REPORT INFORMATION
  Report Type: 
  Country: None (occurrence: None)
  Receive Date: 20120406
  Receipt Date: 20120404
  Transmission Date: 20120825
  Serious: No
  Sender: FDA-Public Use
  Company Number: US-PFIZER INC-2012085602

PATIENT
  Sex: Male

DRUGS (2)
  1. CADUET [Suspect]
     Indication: HYPERTENSION
     Dosage: [AMLODIPINE 5MG]/[ATORVASTATIN 10 MG], UNK
  2. CADUET [Suspect]
     Indication: BLOOD CHOLESTEROL INCREASED
     Dosage: [AMLODIPINE 10MG]/[ATORVASTATIN 10 MG], UNK

REACTIONS (1)
  - JOINT SWELLING [None]
